FAERS Safety Report 5149683-1 (Version None)
Quarter: 2006Q4

REPORT INFORMATION
  Report Type: 
  Country: None (occurrence: None)
  Receive Date: 20061113
  Receipt Date: 20060714
  Transmission Date: 20070319
  Serious: No
  Sender: FDA-Public Use
  Company Number: US-GLAXOSMITHKLINE-A0612333A

PATIENT
  Age: 73 Year
  Sex: Male

DRUGS (5)
  1. COREG [Suspect]
     Indication: HYPERTENSION
     Dosage: 6.25MG TWICE PER DAY
     Route: 048
     Dates: start: 20060101
  2. LISINOPRIL [Concomitant]
  3. TERAZOSIN HCL [Concomitant]
  4. SUCRALFATE [Concomitant]
  5. NIFEREX [Concomitant]

REACTIONS (2)
  - ERECTILE DYSFUNCTION [None]
  - HEART RATE DECREASED [None]
